FAERS Safety Report 23642124 (Version 1)
Quarter: 2024Q1

REPORT INFORMATION
  Report Type: Spontaneous
  Country: FR (occurrence: FR)
  Receive Date: 20240318
  Receipt Date: 20240318
  Transmission Date: 20240410
  Serious: Yes (Hospitalization)
  Sender: FDA-Public Use
  Company Number: None

PATIENT
  Age: 80 Year
  Sex: Female
  Weight: 49 kg

DRUGS (8)
  1. OLANZAPINE [Suspect]
     Active Substance: OLANZAPINE
     Indication: Depression
     Dates: start: 202312
  2. OLANZAPINE [Suspect]
     Active Substance: OLANZAPINE
     Indication: Depression
     Dosage: DAILY DOSE: 5 MILLIGRAM
     Route: 048
     Dates: start: 20231212
  3. OLANZAPINE [Suspect]
     Active Substance: OLANZAPINE
     Indication: Depression
     Dates: end: 202312
  4. SERTRALINE HYDROCHLORIDE [Suspect]
     Active Substance: SERTRALINE HYDROCHLORIDE
     Indication: Depression
     Dosage: DAILY DOSE: 25 MILLIGRAM
     Route: 048
     Dates: start: 20231212
  5. XANAX [Concomitant]
     Active Substance: ALPRAZOLAM
     Dosage: EARLY 2023?DAILY DOSE: 0.75 MILLIGRAM
     Dates: end: 2023
  6. XANAX [Concomitant]
     Active Substance: ALPRAZOLAM
     Dosage: IF NEEDED?DAILY DOSE: 0.5 DOSAGE FORM
  7. PROMESTRIENE [Concomitant]
     Active Substance: PROMESTRIENE
  8. KARDEGIC [Concomitant]
     Active Substance: ASPIRIN DL-LYSINE

REACTIONS (3)
  - General physical health deterioration [Not Recovered/Not Resolved]
  - Pancytopenia [Not Recovered/Not Resolved]
  - Adverse event [Unknown]

NARRATIVE: CASE EVENT DATE: 20240202
